FAERS Safety Report 12170150 (Version 1)
Quarter: 2016Q1

REPORT INFORMATION
  Report Type: Spontaneous
  Country: US (occurrence: US)
  Receive Date: 20160311
  Receipt Date: 20160311
  Transmission Date: 20160526
  Serious: No
  Sender: FDA-Public Use
  Company Number: PHEH2016US005686

PATIENT
  Age: 25 Year
  Sex: Male

DRUGS (2)
  1. AFINITOR [Suspect]
     Active Substance: EVEROLIMUS
     Dosage: 2.5 MG, UNK
     Route: 048
  2. AFINITOR [Suspect]
     Active Substance: EVEROLIMUS
     Dosage: 5 MG, QD
     Route: 048

REACTIONS (6)
  - Erythema nodosum [Recovered/Resolved]
  - No therapeutic response [Unknown]
  - Skin lesion [Recovered/Resolved]
  - Papule [Unknown]
  - Nodule [Unknown]
  - Erythema [Unknown]
